FAERS Safety Report 13616312 (Version 1)
Quarter: 2017Q2

REPORT INFORMATION
  Report Type: Spontaneous
  Country: US (occurrence: US)
  Receive Date: 20170606
  Receipt Date: 20170606
  Transmission Date: 20170830
  Serious: No
  Sender: FDA-Public Use
  Company Number: None

PATIENT
  Age: 79 Year
  Sex: Female
  Weight: 86.26 kg

DRUGS (14)
  1. SYNTHROID [Concomitant]
     Active Substance: LEVOTHYROXINE SODIUM
  2. CRANBERRY. [Concomitant]
     Active Substance: CRANBERRY
  3. ROSUVASTATIN. [Concomitant]
     Active Substance: ROSUVASTATIN
  4. FOLIC ACID. [Concomitant]
     Active Substance: FOLIC ACID
  5. B6 [Concomitant]
     Active Substance: PYRIDOXINE HYDROCHLORIDE
  6. ACETAMINOPHEN. [Concomitant]
     Active Substance: ACETAMINOPHEN
  7. VITAMIN D3 [Concomitant]
     Active Substance: CHOLECALCIFEROL
  8. TOLTERODINE [Concomitant]
     Active Substance: TOLTERODINE
  9. ASPIRIN. [Concomitant]
     Active Substance: ASPIRIN
  10. ELIQUIS [Suspect]
     Active Substance: APIXABAN
     Indication: PULMONARY THROMBOSIS
     Dosage: ?          QUANTITY:?MA TWICE M O/MLL;?
     Route: 048
     Dates: start: 20161128
  11. CITRACAL [Concomitant]
     Active Substance: CALCIUM CITRATE
  12. ATENOLOL. [Concomitant]
     Active Substance: ATENOLOL
  13. POTASSIUM [Concomitant]
     Active Substance: POTASSIUM
  14. FERROUS SULFATE. [Concomitant]
     Active Substance: FERROUS SULFATE

REACTIONS (2)
  - Dry mouth [None]
  - Ageusia [None]

NARRATIVE: CASE EVENT DATE: 20161128
